FAERS Safety Report 5245905-7 (Version None)
Quarter: 2007Q1

REPORT INFORMATION
  Report Type: 
  Country: None (occurrence: None)
  Receive Date: 20070220
  Receipt Date: 20070205
  Transmission Date: 20070707
  Serious: Yes (Other)
  Sender: FDA-Public Use
  Company Number: 20070044 /

PATIENT
  Age: 36 Year
  Sex: Female

DRUGS (1)
  1. VENOFER [Suspect]
     Dosage: 100MG IV ONCE
     Route: 042

REACTIONS (2)
  - ABORTION SPONTANEOUS [None]
  - DRUG EXPOSURE DURING PREGNANCY [None]
